FAERS Safety Report 4432244-7 (Version None)
Quarter: 2004Q3

REPORT INFORMATION
  Report Type: 
  Country: None (occurrence: None)
  Receive Date: 20040820
  Receipt Date: 20040813
  Transmission Date: 20050211
  Serious: Yes (Death)
  Sender: FDA-Public Use
  Company Number: A044-002-005143

PATIENT
  Age: 68 Year
  Sex: Female
  Weight: 40 kg

DRUGS (1)
  1. ARICEPT [Suspect]
     Indication: DEMENTIA ALZHEIMER'S TYPE
     Dosage: 10 MG, 1 IN 1 D, ORAL
     Route: 048
     Dates: start: 20000101, end: 20040729

REACTIONS (2)
  - SYNCOPE [None]
  - VENTRICULAR TACHYCARDIA [None]
